FAERS Safety Report 6414917-X (Version None)
Quarter: 2009Q4

REPORT INFORMATION
  Report Type: 
  Country: None (occurrence: None)
  Receive Date: 20091026
  Receipt Date: 20090305
  Transmission Date: 20100525
  Serious: No
  Sender: FDA-Public Use
  Company Number: US-ABBOTT-09P-163-0561386-00

PATIENT
  Sex: Female
  Weight: 73.548 kg

DRUGS (2)
  1. LUPRON DEPOT [Suspect]
     Indication: ENDOMETRIOSIS
     Dosage: UNKNOWN
     Route: 050
     Dates: start: 20081001
  2. NORETHINDRONE [Concomitant]
     Indication: ENDOMETRIOSIS
     Route: 048

REACTIONS (4)
  - HOT FLUSH [None]
  - METRORRHAGIA [None]
  - MUSCLE SPASMS [None]
  - NIGHT SWEATS [None]
